FAERS Safety Report 13733917 (Version 9)
Quarter: 2018Q4

REPORT INFORMATION
  Report Type: Report from Study
  Country: US (occurrence: US)
  Receive Date: 20170707
  Receipt Date: 20181220
  Transmission Date: 20190204
  Serious: Yes (Hospitalization)
  Sender: FDA-Public Use
  Company Number: US-ACTELION-A-US2017-152498

PATIENT
  Age: 65 Year
  Sex: Male
  Weight: 92.52 kg

DRUGS (14)
  1. UPTRAVI [Suspect]
     Active Substance: SELEXIPAG
     Dosage: 1000 MCG, QAM
     Route: 048
  2. UPTRAVI [Suspect]
     Active Substance: SELEXIPAG
     Dosage: UNK
     Route: 048
  3. ADCIRCA [Concomitant]
     Active Substance: TADALAFIL
     Dosage: 40 MG, QD
  4. VERPAMIL [Concomitant]
     Active Substance: VERAPAMIL HYDROCHLORIDE
  5. SYMAX SR [Concomitant]
     Active Substance: HYOSCYAMINE SULFATE
     Dosage: 0.375 MG, BID
  6. OPSUMIT [Suspect]
     Active Substance: MACITENTAN
     Indication: PULMONARY HYPERTENSION
     Dosage: 10 MG, QD
     Route: 048
     Dates: start: 201403
  7. LEVOTHYROXINE. [Concomitant]
     Active Substance: LEVOTHYROXINE
     Dosage: 25 MEQ, QD
  8. UPTRAVI [Suspect]
     Active Substance: SELEXIPAG
     Indication: PULMONARY HYPERTENSION
     Dosage: 1000 MCG QAM, 800 MCG QPM
     Route: 048
     Dates: start: 201602
  9. LASIX [Concomitant]
     Active Substance: FUROSEMIDE
     Dosage: 40 UNK, M W F
  10. DOXEPIN [Concomitant]
     Active Substance: DOXEPIN
     Dosage: 10 MG, QPM
  11. LASIX [Concomitant]
     Active Substance: FUROSEMIDE
     Dosage: 40 MG, ON MONDAY AND FRIDAY
     Route: 048
  12. UPTRAVI [Suspect]
     Active Substance: SELEXIPAG
     Dosage: 1000 MCG, BID
     Route: 048
  13. UPTRAVI [Suspect]
     Active Substance: SELEXIPAG
     Dosage: 800 MCG QAM, 1000 MCG QPM
     Route: 048
  14. SPIRONOLACTONE. [Concomitant]
     Active Substance: SPIRONOLACTONE
     Dosage: 50 MG, QD

REACTIONS (10)
  - Lung disorder [Unknown]
  - Pleural effusion [Unknown]
  - Orthostatic hypotension [Recovered/Resolved]
  - Dehydration [Unknown]
  - Adverse event [Unknown]
  - Nasopharyngitis [Unknown]
  - Pericardial effusion [Unknown]
  - Flushing [Unknown]
  - Cough [Unknown]
  - Syncope [Unknown]

NARRATIVE: CASE EVENT DATE: 20170801
